FAERS Safety Report 16566488 (Version 1)
Quarter: 2019Q3

REPORT INFORMATION
  Report Type: Spontaneous
  Country: DE (occurrence: DE)
  Receive Date: 20190712
  Receipt Date: 20190712
  Transmission Date: 20191004
  Serious: Yes (Congenital Anomaly, Other)
  Sender: FDA-Public Use
  Company Number: DE-PFIZER INC-2019293082

PATIENT
  Age: 1 Day
  Sex: Female
  Weight: 4 kg

DRUGS (5)
  1. SERTRALINE HCL [Suspect]
     Active Substance: SERTRALINE HYDROCHLORIDE
     Dosage: 50 MG, DAILY (DOSE REDUCTION TO 50MG DAILY (5 WEEKS BEFORE THE ESTIMATED DATE OF DELIVERY, 0. - 40.)
     Route: 064
  2. L-THYROXIN [LEVOTHYROXINE SODIUM] [Concomitant]
     Dosage: 175 UG (TO 100, 0. - 40.4. GESTATIONAL WEEK)
     Route: 064
     Dates: start: 20170715, end: 20180425
  3. PARACETAMOL [Concomitant]
     Active Substance: ACETAMINOPHEN
     Dosage: 500 MG, DAILY, (IN TOTAL FOR 7 DAYS, TRIMESTER: 2ND + 3RD)
     Route: 064
  4. SERTRALINE HCL [Suspect]
     Active Substance: SERTRALINE HYDROCHLORIDE
     Dosage: 100 MG, DAILY
     Route: 064
     Dates: start: 20170715, end: 20180425
  5. AMOXICILLIN. [Concomitant]
     Active Substance: AMOXICILLIN
     Dosage: 1500 MG, DAILY(TO 1000), (11.1. - 15.3. GESTATIONAL WEEK)
     Route: 064

REACTIONS (6)
  - Congenital megaureter [Recovered/Resolved with Sequelae]
  - Congenital ureterovesical junction anomaly [Recovered/Resolved with Sequelae]
  - Congenital hydronephrosis [Unknown]
  - Congenital renal cyst [Unknown]
  - Pyelonephritis [Recovered/Resolved]
  - Hepatitis neonatal [Recovering/Resolving]

NARRATIVE: CASE EVENT DATE: 20180425
